FAERS Safety Report 15042761 (Version 2)
Quarter: 2018Q2

REPORT INFORMATION
  Report Type: Spontaneous
  Country: US (occurrence: US)
  Receive Date: 20180621
  Receipt Date: 20180629
  Transmission Date: 20180711
  Serious: Yes (Other)
  Sender: FDA-Public Use
  Company Number: US-TEVA-2018-US-912524

PATIENT
  Age: 83 Year
  Sex: Male

DRUGS (1)
  1. GALANTAMINE TEVA [Suspect]
     Active Substance: GALANTAMINE
     Indication: DEMENTIA ALZHEIMER^S TYPE
     Route: 065
     Dates: start: 201806

REACTIONS (5)
  - Middle insomnia [Unknown]
  - Drug ineffective [Unknown]
  - Anxiety [Unknown]
  - Delusion [Unknown]
  - Confusional state [Unknown]

NARRATIVE: CASE EVENT DATE: 201806
